FAERS Safety Report 5696394-X (Version None)
Quarter: 2008Q2

REPORT INFORMATION
  Report Type: 
  Country: None (occurrence: None)
  Receive Date: 20080408
  Receipt Date: 20080328
  Transmission Date: 20081010
  Serious: Yes (Other)
  Sender: FDA-Public Use
  Company Number: GB-RANBAXY-2008RR-14111

PATIENT

DRUGS (6)
  1. PRAVASTATIN SODIUM 10 MG TABLETS [Suspect]
     Indication: CARDIOVASCULAR EVENT PROPHYLAXIS
     Dosage: 30 MG, QD
     Route: 048
     Dates: start: 20000101
  2. ASPIRIN [Concomitant]
  3. ATENOLOL [Concomitant]
  4. CANDESARTAN CILEXETIL [Concomitant]
  5. GAVISCON [Concomitant]
  6. TAMSULOSIN HCL [Concomitant]

REACTIONS (1)
  - ORAL MUCOSAL EXFOLIATION [None]
